FAERS Safety Report 21000121 (Version 1)
Quarter: 2022Q2

REPORT INFORMATION
  Report Type: Report from Study
  Country: US (occurrence: US)
  Receive Date: 20220623
  Receipt Date: 20220623
  Transmission Date: 20220721
  Serious: Yes (Other)
  Sender: FDA-Public Use
  Company Number: US-Taiho Oncology Inc-EU-2022-01107

PATIENT
  Age: 70 Year
  Sex: Male

DRUGS (1)
  1. LONSURF [Suspect]
     Active Substance: TIPIRACIL HYDROCHLORIDE\TRIFLURIDINE
     Indication: Colon cancer
     Dosage: CYCLE 1; CYCLE 3
     Route: 048

REACTIONS (11)
  - Pulmonary oedema [Unknown]
  - Haemoglobin decreased [Unknown]
  - Disease progression [Unknown]
  - Night sweats [Unknown]
  - Muscular weakness [Unknown]
  - Mastication disorder [Unknown]
  - Allergic cough [Not Recovered/Not Resolved]
  - Illness [Recovering/Resolving]
  - Gastroenteritis viral [Recovered/Resolved]
  - Abdominal discomfort [Unknown]
  - Fatigue [Unknown]

NARRATIVE: CASE EVENT DATE: 20220411
